FAERS Safety Report 23559507 (Version 1)
Quarter: 2024Q1

REPORT INFORMATION
  Report Type: Spontaneous
  Country: US (occurrence: None)
  Receive Date: 20240223
  Receipt Date: 20240223
  Transmission Date: 20240409
  Serious: No
  Sender: FDA-Public Use
  Company Number: None

PATIENT
  Age: 61 Year
  Sex: Male

DRUGS (1)
  1. TREMFYA [Suspect]
     Active Substance: GUSELKUMAB
     Indication: Psoriasis
     Dosage: INJECT 100MG SUBCUTANEOUSLY EVERY 8 WEEKS AS DIRECTED.
     Route: 058
     Dates: start: 202204

REACTIONS (1)
  - Infection [None]
